FAERS Safety Report 21310670 (Version 2)
Quarter: 2022Q3

REPORT INFORMATION
  Report Type: Spontaneous
  Country: CN (occurrence: CN)
  Receive Date: 20220909
  Receipt Date: 20220919
  Transmission Date: 20221027
  Serious: Yes (Hospitalization)
  Sender: FDA-Public Use
  Company Number: CN-BRISTOL-MYERS SQUIBB COMPANY-2022-101011

PATIENT
  Age: 56 Year
  Sex: Female

DRUGS (10)
  1. ABATACEPT [Suspect]
     Active Substance: ABATACEPT
     Indication: Rheumatoid arthritis
     Dosage: DOSE: 1 UNK, QW
     Route: 058
     Dates: end: 20220823
  2. TOTAL GLUCOSIDES OF WHITE PAEONY [Concomitant]
     Indication: Product used for unknown indication
     Dosage: 2 TABLETS BID
     Route: 065
     Dates: start: 20220430
  3. RABEPRAZOLE SODIUM ACTAVIS [Concomitant]
     Indication: Product used for unknown indication
     Route: 065
     Dates: start: 20220430
  4. EBASTINE [Concomitant]
     Active Substance: EBASTINE
     Indication: Product used for unknown indication
     Dosage: 1 TABLET QD
     Route: 065
     Dates: start: 20220430
  5. MECOBALAMIN AMEL [Concomitant]
     Indication: Product used for unknown indication
     Route: 065
  6. PREDNISONE [Concomitant]
     Active Substance: PREDNISONE
     Indication: Product used for unknown indication
     Dosage: 4 TABLETS QD
     Route: 065
     Dates: start: 20220430
  7. IGURATIMOD [Concomitant]
     Active Substance: IGURATIMOD
     Indication: Product used for unknown indication
     Route: 065
     Dates: start: 20220430
  8. CALCIUM CARBONATE [Concomitant]
     Active Substance: CALCIUM CARBONATE
     Indication: Product used for unknown indication
     Dosage: D3 TABLETS 1 TABLET QD
     Route: 065
     Dates: start: 20220430
  9. ETORICOXIB [Concomitant]
     Active Substance: ETORICOXIB
     Indication: Product used for unknown indication
     Dosage: 1 TABLET QD
     Route: 065
     Dates: start: 20220430
  10. METRONIDAZOLE [Concomitant]
     Active Substance: METRONIDAZOLE
     Indication: Product used for unknown indication
     Dosage: 1 TABLET QD
     Route: 065

REACTIONS (4)
  - Rash [Not Recovered/Not Resolved]
  - Pruritus [Recovering/Resolving]
  - Skin swelling [Unknown]
  - Erythema [Unknown]

NARRATIVE: CASE EVENT DATE: 20220719
